FAERS Safety Report 8126956-1 (Version None)
Quarter: 2012Q1

REPORT INFORMATION
  Report Type: 
  Country: None (occurrence: None)
  Receive Date: 20120210
  Receipt Date: 20120119
  Transmission Date: 20120608
  Serious: No
  Sender: FDA-Public Use
  Company Number: US-BAYER-2011-117507

PATIENT
  Age: 79 Year
  Sex: Male
  Weight: 78.458 kg

DRUGS (1)
  1. LEVITRA [Suspect]
     Indication: ERECTILE DYSFUNCTION
     Dosage: AS NEEDED, LESS THAN 1 A DAY

REACTIONS (3)
  - NAUSEA [None]
  - DIZZINESS [None]
  - ADVERSE EVENT [None]
